FAERS Safety Report 18780496 (Version 1)
Quarter: 2021Q1

REPORT INFORMATION
  Report Type: Spontaneous
  Country: US (occurrence: US)
  Receive Date: 20210122
  Receipt Date: 20210122
  Transmission Date: 20210419
  Serious: Yes (Other)
  Sender: FDA-Public Use
  Company Number: None

PATIENT
  Age: 15 Year
  Sex: Female
  Weight: 108 kg

DRUGS (3)
  1. IRON [Concomitant]
     Active Substance: IRON
  2. MELATONIN 5 MG [Concomitant]
  3. LATUDA [Suspect]
     Active Substance: LURASIDONE HYDROCHLORIDE
     Indication: LACTATION DISORDER
     Dosage: ?          QUANTITY:1 TABLET(S);?
     Route: 048
     Dates: start: 20200920, end: 20210111

REACTIONS (1)
  - Lactation disorder [None]

NARRATIVE: CASE EVENT DATE: 20201201
